FAERS Safety Report 6881789-9 (Version None)
Quarter: 2010Q3

REPORT INFORMATION
  Report Type: 
  Country: None (occurrence: None)
  Receive Date: 20100729
  Receipt Date: 20100719
  Transmission Date: 20110219
  Serious: Yes (Hospitalization, Other)
  Sender: FDA-Public Use
  Company Number: US-PFIZER INC-2009208438

PATIENT
  Sex: Female

DRUGS (1)
  1. CHANTIX [Suspect]
     Indication: SMOKING CESSATION THERAPY
     Dosage: UNK
     Dates: start: 20080101

REACTIONS (7)
  - AMNESIA [None]
  - BIPOLAR II DISORDER [None]
  - HOMICIDAL IDEATION [None]
  - HYPERTENSION [None]
  - MUSCLE SPASMS [None]
  - PSYCHOTIC DISORDER [None]
  - SUICIDAL IDEATION [None]
